FAERS Safety Report 5047151-9 (Version None)
Quarter: 2006Q3

REPORT INFORMATION
  Report Type: 
  Country: None (occurrence: None)
  Receive Date: 20060703
  Receipt Date: 20060616
  Transmission Date: 20061208
  Serious: Yes (Death)
  Sender: FDA-Public Use
  Company Number: 111070ISR

PATIENT
  Age: 78 Year
  Sex: Female

DRUGS (10)
  1. LACTULOSE [Suspect]
     Dosage: ORAL
     Route: 048
  2. LANSOPRAZOLE [Suspect]
     Dosage: 15 MILLIGRAM, ORAL
     Route: 048
  3. QUININE SULFATE [Suspect]
     Dosage: 300 MILLIGRAM, ORAL
     Route: 048
  4. SALBUTAMOL [Suspect]
     Dosage: 4 MILLIGRAM, RESPIRATORY
     Route: 055
  5. AQUEOUS CREAM [Suspect]
  6. DEXAMETHASONE TAB [Suspect]
     Dosage: ORAL
     Route: 048
  7. ACETAMINOPHEN [Suspect]
     Dosage: ORAL
     Route: 048
  8. SENNA [Suspect]
     Dosage: ORAL
     Route: 048
  9. SERETIDE (FLUTICASONE PROPINATE AND SALMETEROL XINAFOATE) [Suspect]
     Dosage: RESPIRATORY
     Route: 055
  10. SPIRIVA [Suspect]
     Dosage: RESPIRATORY
     Route: 055

REACTIONS (1)
  - NON-HODGKIN'S LYMPHOMA [None]
